FAERS Safety Report 19958151 (Version 1)
Quarter: 2021Q4

REPORT INFORMATION
  Report Type: Spontaneous
  Country: US (occurrence: US)
  Receive Date: 20211015
  Receipt Date: 20211015
  Transmission Date: 20220304
  Serious: Yes (Hospitalization, Other)
  Sender: FDA-Public Use
  Company Number: US-BAYER-2021A227484

PATIENT
  Age: 77 Year
  Sex: Female

DRUGS (1)
  1. BETASERON [Suspect]
     Active Substance: INTERFERON BETA-1B
     Dosage: 0.3 DF, QOD
     Route: 058
     Dates: start: 20171001, end: 20211004

REACTIONS (4)
  - Weight decreased [None]
  - Pulmonary thrombosis [None]
  - Glycosylated haemoglobin increased [None]
  - Muscle atrophy [None]

NARRATIVE: CASE EVENT DATE: 20211008
